FAERS Safety Report 11144257 (Version 1)
Quarter: 2015Q2

REPORT INFORMATION
  Report Type: Spontaneous
  Country: GB (occurrence: GB)
  Receive Date: 20150526
  Receipt Date: 20150526
  Transmission Date: 20150821
  Serious: Yes (Hospitalization)
  Sender: FDA-Public Use
  Company Number: GB-TEVA-563501ACC

PATIENT
  Age: 88 Year
  Sex: Female
  Weight: 60 kg

DRUGS (12)
  1. FUROSEMIDE. [Concomitant]
     Active Substance: FUROSEMIDE
  2. ISOSORBIDE [Concomitant]
     Active Substance: ISOSORBIDE
  3. PREDNISOLONE. [Concomitant]
     Active Substance: PREDNISOLONE
  4. CICLOSPORIN [Interacting]
     Active Substance: CYCLOSPORINE
     Indication: IMMUNE THROMBOCYTOPENIC PURPURA
     Route: 048
  5. ASPIRIN. [Concomitant]
     Active Substance: ASPIRIN
  6. LEVOTHYROXINE [Concomitant]
     Active Substance: LEVOTHYROXINE
  7. TERBUTALINE [Concomitant]
     Active Substance: TERBUTALINE
  8. AMIODARONE [Concomitant]
     Active Substance: AMIODARONE
  9. BISOPROLOL [Concomitant]
     Active Substance: BISOPROLOL
  10. GLYCERYL TRINITRATE [Concomitant]
     Active Substance: NITROGLYCERIN
  11. CACIT VITAMIN D3 [Concomitant]
     Active Substance: CALCIUM CARBONATE\CHOLECALCIFEROL
  12. ATORVASTATIN [Suspect]
     Active Substance: ATORVASTATIN
     Indication: ACUTE MYOCARDIAL INFARCTION
     Route: 048

REACTIONS (4)
  - Drug prescribing error [Unknown]
  - Drug interaction [Unknown]
  - Muscular weakness [Recovering/Resolving]
  - Rhabdomyolysis [Unknown]
